FAERS Safety Report 7382836-0 (Version None)
Quarter: 2011Q1

REPORT INFORMATION
  Report Type: 
  Country: None (occurrence: None)
  Receive Date: 20110330
  Receipt Date: 20110328
  Transmission Date: 20110831
  Serious: No
  Sender: FDA-Public Use
  Company Number: US-BIOGENIDEC-2011BI011335

PATIENT
  Age: 58 Year
  Sex: Female

DRUGS (2)
  1. AVONEX [Suspect]
     Indication: MULTIPLE SCLEROSIS
     Route: 030
  2. AVONEX [Suspect]
     Route: 030
     Dates: start: 20010101

REACTIONS (8)
  - EAR CONGESTION [None]
  - INFLUENZA [None]
  - UPPER AIRWAY OBSTRUCTION [None]
  - PYREXIA [None]
  - PAIN [None]
  - PHOTOSENSITIVITY REACTION [None]
  - NASAL CONGESTION [None]
  - COUGH [None]
